FAERS Safety Report 19086699 (Version 3)
Quarter: 2021Q2

REPORT INFORMATION
  Report Type: Spontaneous
  Country: CA (occurrence: CA)
  Receive Date: 20210402
  Receipt Date: 20210604
  Transmission Date: 20210717
  Serious: Yes (Hospitalization, Disabling, Other)
  Sender: FDA-Public Use
  Company Number: CA-PFIZER INC-2021325168

PATIENT
  Age: 73 Year
  Sex: Male
  Weight: 83 kg

DRUGS (14)
  1. DILANTIN [Interacting]
     Active Substance: PHENYTOIN
     Dosage: 100MG 2X/DAY + 50 MG DAILY
     Route: 048
     Dates: start: 20201024, end: 20210102
  2. ACETAMINOPHEN. [Concomitant]
     Active Substance: ACETAMINOPHEN
     Dosage: 650 MG, 4X/DAY
  3. LEVOTHYROXINE. [Concomitant]
     Active Substance: LEVOTHYROXINE
     Dosage: 188 UG, 1X/DAY
  4. WARFARIN [Concomitant]
     Active Substance: WARFARIN
     Dosage: BASED ON INR
  5. NITROFURANTOIN. [Concomitant]
     Active Substance: NITROFURANTOIN
     Dosage: 100 MG, 2X/DAY
     Dates: start: 20210204, end: 20210209
  6. DILANTIN [Interacting]
     Active Substance: PHENYTOIN
     Dosage: 100 MG, 3X/DAY
     Route: 048
     Dates: start: 20200104, end: 20201023
  7. DILANTIN [Interacting]
     Active Substance: PHENYTOIN
     Dosage: 100 MG, 3X/DAY
     Route: 048
     Dates: start: 20210103, end: 20210211
  8. DILANTIN [Interacting]
     Active Substance: PHENYTOIN
     Dosage: 100 MG, 2X/DAY
     Route: 048
     Dates: start: 20210212, end: 20210224
  9. DILANTIN [Interacting]
     Active Substance: PHENYTOIN
     Dosage: 100 MG, DAILY
     Route: 048
     Dates: start: 20210222, end: 20210325
  10. CLOBAZAM. [Concomitant]
     Active Substance: CLOBAZAM
     Dosage: 5MG IN THE MORNING AND 20 MG AT BEDTIME
  11. POLYETHYLENE GLYCOL [MACROGOL] [Concomitant]
     Active Substance: POLYETHYLENE GLYCOLS
     Dosage: 17G ONCE A DAY AS NEEDED
  12. DILANTIN [Suspect]
     Active Substance: PHENYTOIN
     Indication: EPILEPSY
     Dosage: 100 MG, 3X/DAY
     Route: 048
     Dates: start: 20110101
  13. BACTRIM [Concomitant]
     Active Substance: SULFAMETHOXAZOLE\TRIMETHOPRIM
     Indication: PROPHYLAXIS URINARY TRACT INFECTION
     Dosage: 80?400MG EVERY 2 DAYS
  14. VITAMIN B12 [VITAMIN B12 NOS] [Concomitant]
     Active Substance: CYANOCOBALAMIN
     Dosage: 1200 UG, 1X/DAY

REACTIONS (9)
  - Bradykinesia [Recovered/Resolved]
  - General physical health deterioration [Recovered/Resolved]
  - Asthenia [Unknown]
  - Psychomotor skills impaired [Recovered/Resolved]
  - Pain in extremity [Recovered/Resolved]
  - Muscular weakness [Recovered/Resolved]
  - Gait disturbance [Recovered/Resolved]
  - Anticonvulsant drug level increased [Unknown]
  - Drug interaction [Unknown]

NARRATIVE: CASE EVENT DATE: 20210206
